FAERS Safety Report 13377810 (Version 6)
Quarter: 2017Q2

REPORT INFORMATION
  Report Type: Spontaneous
  Country: JP (occurrence: JP)
  Receive Date: 20170328
  Receipt Date: 20170530
  Transmission Date: 20170830
  Serious: Yes (Other)
  Sender: FDA-Public Use
  Company Number: JP-GILEAD-2017-0263869AA

PATIENT
  Age: 71 Year
  Sex: Female

DRUGS (15)
  1. URSO [Concomitant]
     Active Substance: URSODIOL
  2. METHYCOBAL [Concomitant]
     Active Substance: METHYLCOBALAMIN
     Indication: HYPOAESTHESIA
  3. STOMIN A [Concomitant]
     Active Substance: NIACINAMIDE\PAPAVERINE HYDROCHLORIDE
     Indication: TINNITUS
  4. OLMETEC [Concomitant]
     Active Substance: OLMESARTAN MEDOXOMIL
     Indication: HYPERTENSION
  5. METHYCOBAL [Concomitant]
     Active Substance: METHYLCOBALAMIN
     Indication: HYPOAESTHESIA ORAL
  6. POSTERISAN                         /00028601/ [Concomitant]
     Indication: HAEMORRHOIDS
  7. HARVONI [Suspect]
     Active Substance: LEDIPASVIR\SOFOSBUVIR
     Indication: CHRONIC HEPATITIS C
     Dosage: 1 DF, QD
     Route: 048
     Dates: start: 20170201, end: 20170425
  8. NORVASC [Concomitant]
     Active Substance: AMLODIPINE BESYLATE
     Indication: HYPERTENSION
  9. STOMIN A [Concomitant]
     Active Substance: NIACINAMIDE\PAPAVERINE HYDROCHLORIDE
     Indication: DEAFNESS
  10. PURSENNID                          /00571902/ [Concomitant]
     Active Substance: SENNOSIDES A AND B
     Indication: CONSTIPATION
  11. PURSENNID                          /00571902/ [Concomitant]
     Active Substance: SENNOSIDES A AND B
     Indication: HAEMORRHOIDS
  12. HORIZON [Concomitant]
     Active Substance: DIAZEPAM
  13. POSTERISAN                         /00028601/ [Concomitant]
     Indication: CONSTIPATION
  14. STRONGER NEO-MINOPHAGEN C [Concomitant]
     Active Substance: AMMONIUM GLYCYRRHIZATE\CYSTEINE HYDROCHLORIDE\GLYCINE
     Dosage: UNK, PRN
  15. NEXIUM [Concomitant]
     Active Substance: ESOMEPRAZOLE MAGNESIUM
     Indication: GASTROOESOPHAGEAL REFLUX DISEASE

REACTIONS (16)
  - Urinary bladder haemorrhage [Unknown]
  - Palpitations [Unknown]
  - Malaise [Not Recovered/Not Resolved]
  - Cystitis [Not Recovered/Not Resolved]
  - No adverse event [Unknown]
  - Inappropriate schedule of drug administration [Recovered/Resolved]
  - Genital haemorrhage [Not Recovered/Not Resolved]
  - Gastric disorder [Not Recovered/Not Resolved]
  - Skin discolouration [Unknown]
  - Liver disorder [Not Recovered/Not Resolved]
  - Weight decreased [Unknown]
  - Feeling abnormal [Unknown]
  - Abdominal discomfort [Unknown]
  - Large intestinal haemorrhage [Not Recovered/Not Resolved]
  - Polyp [Unknown]
  - Urethral prolapse [Unknown]

NARRATIVE: CASE EVENT DATE: 2017
